FAERS Safety Report 9142643 (Version 2)
Quarter: 2013Q1

REPORT INFORMATION
  Report Type: Spontaneous
  Country: AR (occurrence: AR)
  Receive Date: 20130306
  Receipt Date: 20130328
  Transmission Date: 20140127
  Serious: Yes (Other)
  Sender: FDA-Public Use
  Company Number: PHHY2013AR020664

PATIENT
  Sex: Female

DRUGS (2)
  1. TEGRETOL [Suspect]
     Indication: CONVULSION
     Dosage: 400 MG, BID
     Route: 048
     Dates: start: 1982
  2. DEPAKENE [Concomitant]
     Indication: CONVULSION
     Dosage: UNK UKN, UNK

REACTIONS (2)
  - Cataract [Recovered/Resolved]
  - Convulsion [Recovered/Resolved]
